FAERS Safety Report 5522428-9 (Version None)
Quarter: 2007Q4

REPORT INFORMATION
  Report Type: 
  Country: None (occurrence: None)
  Receive Date: 20071120
  Receipt Date: 20071114
  Transmission Date: 20080405
  Serious: Yes (Life-Threatening)
  Sender: FDA-Public Use
  Company Number: US-PFIZER INC-2006077883

PATIENT
  Sex: Female
  Weight: 74.8 kg

DRUGS (4)
  1. NORVASC [Suspect]
     Indication: HYPERTENSION
     Route: 048
  2. LIPITOR [Suspect]
  3. PAXIL [Suspect]
     Indication: DRUG USE FOR UNKNOWN INDICATION
     Dosage: TEXT:UNKNOWN-FREQ:UNKNOWN
     Route: 065
  4. DRUG, UNSPECIFIED [Concomitant]
     Route: 065

REACTIONS (4)
  - HEADACHE [None]
  - MIDDLE INSOMNIA [None]
  - POLLAKIURIA [None]
  - ROAD TRAFFIC ACCIDENT [None]
